FAERS Safety Report 7247003-X (Version None)
Quarter: 2011Q1

REPORT INFORMATION
  Report Type: 
  Country: None (occurrence: None)
  Receive Date: 20110127
  Receipt Date: 20101207
  Transmission Date: 20110831
  Serious: Yes (Hospitalization)
  Sender: FDA-Public Use
  Company Number: FR-CEPHALON-2010006402

PATIENT
  Sex: Female
  Weight: 58 kg

DRUGS (7)
  1. TREANDA [Suspect]
     Route: 042
     Dates: start: 20101207
  2. VELCADE [Suspect]
     Indication: MULTIPLE MYELOMA
     Route: 042
     Dates: start: 20100927, end: 20101116
  3. AMOXICILLIN [Concomitant]
     Dates: start: 20101130, end: 20101210
  4. CEFTRIAXONE [Concomitant]
     Dates: start: 20101124, end: 20101130
  5. OFLOXACIN [Concomitant]
     Dates: start: 20101124, end: 20101210
  6. TREANDA [Suspect]
     Indication: MULTIPLE MYELOMA
     Route: 042
     Dates: start: 20100927, end: 20101102
  7. DEXAMETHASONE [Suspect]
     Indication: MULTIPLE MYELOMA
     Route: 048
     Dates: start: 20100927, end: 20101116

REACTIONS (2)
  - HAEMOPHILUS INFECTION [None]
  - HYPERTHERMIA [None]
